FAERS Safety Report 7917827-1 (Version None)
Quarter: 2011Q4

REPORT INFORMATION
  Report Type: 
  Country: None (occurrence: None)
  Receive Date: 20111116
  Receipt Date: 20111102
  Transmission Date: 20120403
  Serious: Yes (Hospitalization)
  Sender: FDA-Public Use
  Company Number: PHHY2011PL097499

PATIENT
  Age: 50 Year
  Sex: Female

DRUGS (3)
  1. EVEROLIMUS [Suspect]
     Dosage: 750 MG, BID
  2. NEORAL [Suspect]
     Indication: IMMUNOSUPPRESSION
  3. EVEROLIMUS [Suspect]
     Dosage: 500 MG, BID

REACTIONS (6)
  - ALANINE AMINOTRANSFERASE INCREASED [None]
  - CHOLANGITIS SCLEROSING [None]
  - BILIARY TRACT DISORDER [None]
  - ASPARTATE AMINOTRANSFERASE INCREASED [None]
  - BLOOD ALKALINE PHOSPHATASE INCREASED [None]
  - HEPATIC ENZYME INCREASED [None]
